FAERS Safety Report 16077344 (Version 4)
Quarter: 2019Q3

REPORT INFORMATION
  Report Type: Report from Study
  Country: US (occurrence: US)
  Receive Date: 20190315
  Receipt Date: 20190918
  Transmission Date: 20191004
  Serious: Yes (Hospitalization)
  Sender: FDA-Public Use
  Company Number: US-PFIZER INC-2019110085

PATIENT
  Age: 5 Year
  Sex: Male
  Weight: 19.7 kg

DRUGS (9)
  1. CYTARABINE. [Suspect]
     Active Substance: CYTARABINE
     Indication: B-CELL TYPE ACUTE LEUKAEMIA
     Dosage: 0.59 ML, QD
     Route: 058
     Dates: start: 20190202, end: 20190204
  2. ASPARAGINASE [Suspect]
     Active Substance: ASPARAGINASE
     Indication: B-CELL TYPE ACUTE LEUKAEMIA
     Dosage: 19500 IU, SINGLE
     Route: 030
     Dates: start: 20190218, end: 20190218
  3. MERCAPTOPURINE. [Suspect]
     Active Substance: MERCAPTOPURINE
     Indication: B-CELL TYPE ACUTE LEUKAEMIA
     Dosage: 46.8 MG, QD
     Route: 048
     Dates: start: 20190125, end: 20190207
  4. ATARAX [Suspect]
     Active Substance: HYDROXYZINE HYDROCHLORIDE
     Dosage: UNK
     Dates: start: 20190211
  5. INCB018424 [Suspect]
     Active Substance: RUXOLITINIB
     Indication: B-CELL TYPE ACUTE LEUKAEMIA
     Dosage: 40 MG, BID
     Route: 048
     Dates: start: 20190125, end: 20190207
  6. NEURONTIN [Suspect]
     Active Substance: GABAPENTIN
     Dosage: UNK
     Dates: start: 20190125
  7. VINCRISTINE SULFATE. [Suspect]
     Active Substance: VINCRISTINE SULFATE
     Indication: B-CELL TYPE ACUTE LEUKAEMIA
     Dosage: 1.17 MG, ONCE
     Route: 042
     Dates: start: 20190215, end: 20190215
  8. ZOFRAN [Concomitant]
     Active Substance: ONDANSETRON HYDROCHLORIDE
     Dosage: UNK
     Dates: start: 20181115
  9. BACTRIM [Concomitant]
     Active Substance: SULFAMETHOXAZOLE\TRIMETHOPRIM
     Dosage: UNK
     Dates: start: 20181109

REACTIONS (2)
  - Hallucination, visual [Recovered/Resolved]
  - Febrile neutropenia [Recovered/Resolved]

NARRATIVE: CASE EVENT DATE: 20190218
